FAERS Safety Report 11283889 (Version 5)
Quarter: 2016Q1

REPORT INFORMATION
  Report Type: Spontaneous
  Country: US (occurrence: US)
  Receive Date: 20150720
  Receipt Date: 20160105
  Transmission Date: 20160525
  Serious: Yes (Death, Life-Threatening, Hospitalization, Disabling)
  Sender: FDA-Public Use
  Company Number: US-JNJFOC-20150709653

PATIENT
  Age: 60 Year
  Sex: Male

DRUGS (2)
  1. XARELTO [Suspect]
     Active Substance: RIVAROXABAN
     Indication: DEEP VEIN THROMBOSIS
     Route: 048
     Dates: start: 201505, end: 201505
  2. XARELTO [Suspect]
     Active Substance: RIVAROXABAN
     Indication: NEOPLASM MALIGNANT
     Route: 048
     Dates: start: 201505, end: 201505

REACTIONS (3)
  - Metastatic carcinoma of the bladder [Fatal]
  - Pulmonary embolism [Not Recovered/Not Resolved]
  - Deep vein thrombosis [Not Recovered/Not Resolved]

NARRATIVE: CASE EVENT DATE: 2015
